FAERS Safety Report 7811943-0 (Version None)
Quarter: 2011Q4

REPORT INFORMATION
  Report Type: 
  Country: None (occurrence: None)
  Receive Date: 20111013
  Receipt Date: 20111011
  Transmission Date: 20120403
  Serious: Yes (Death, Hospitalization, Other)
  Sender: FDA-Public Use
  Company Number: PHEH2011US06346

PATIENT
  Sex: Female

DRUGS (1)
  1. RECLAST [Suspect]
     Dosage: UNK UKN, UNK
     Route: 042
     Dates: start: 20091221

REACTIONS (5)
  - PULMONARY CONGESTION [None]
  - CARDIO-RESPIRATORY ARREST [None]
  - COUGH [None]
  - PNEUMONIA [None]
  - RESPIRATORY FAILURE [None]
